FAERS Safety Report 17712876 (Version 3)
Quarter: 2021Q3

REPORT INFORMATION
  Report Type: Spontaneous
  Country: US (occurrence: US)
  Receive Date: 20200427
  Receipt Date: 20210702
  Transmission Date: 20211014
  Serious: Yes (Other)
  Sender: FDA-Public Use
  Company Number: US-GILEAD-2020-0460258

PATIENT
  Age: 57 Year
  Sex: Male
  Weight: 94.79 kg

DRUGS (36)
  1. METHYLPREDNISOLONE. [Concomitant]
     Active Substance: METHYLPREDNISOLONE
  2. LEVAQUIN [Concomitant]
     Active Substance: LEVOFLOXACIN
  3. DESCOVY [Concomitant]
     Active Substance: EMTRICITABINE\TENOFOVIR ALAFENAMIDE FUMARATE
  4. SOMA [Concomitant]
     Active Substance: CARISOPRODOL
  5. CAVERJECT IMPULSE [Concomitant]
     Active Substance: ALPROSTADIL
  6. FAMCICLOVIR. [Concomitant]
     Active Substance: FAMCICLOVIR
  7. IMURAN [Concomitant]
     Active Substance: AZATHIOPRINE
  8. CHLORDIAZEPOXIDE. [Concomitant]
     Active Substance: CHLORDIAZEPOXIDE
  9. ANDROGEL [Concomitant]
     Active Substance: TESTOSTERONE
  10. METROGEL [Concomitant]
     Active Substance: METRONIDAZOLE
  11. PROTONIX [Concomitant]
     Active Substance: PANTOPRAZOLE SODIUM
  12. ACETAMINOPHEN;HYDROCODONE [Concomitant]
     Active Substance: ACETAMINOPHEN\HYDROCODONE
  13. CHERATUSSIN AC [Concomitant]
     Active Substance: CODEINE PHOSPHATE\GUAIFENESIN
  14. GABAPENTIN. [Concomitant]
     Active Substance: GABAPENTIN
  15. TRUVADA [Suspect]
     Active Substance: EMTRICITABINE\TENOFOVIR DISOPROXIL FUMARATE
     Indication: PROPHYLAXIS AGAINST HIV INFECTION
     Dosage: UNK
     Route: 048
     Dates: start: 20150326, end: 2019
  16. OMEPRAZOLE. [Concomitant]
     Active Substance: OMEPRAZOLE
  17. PREDNISONE. [Concomitant]
     Active Substance: PREDNISONE
  18. FOLIC ACID. [Concomitant]
     Active Substance: FOLIC ACID
  19. CLINDAMYCIN. [Concomitant]
     Active Substance: CLINDAMYCIN
  20. DICLOFENAC SODIUM. [Concomitant]
     Active Substance: DICLOFENAC SODIUM
  21. ZOFRAN [Concomitant]
     Active Substance: ONDANSETRON HYDROCHLORIDE
  22. FLEXERIL [Concomitant]
     Active Substance: CYCLOBENZAPRINE HYDROCHLORIDE
  23. GIAZO [Concomitant]
     Active Substance: BALSALAZIDE DISODIUM
  24. SUPREP BOWEL PREP [Concomitant]
     Active Substance: MAGNESIUM SULFATE\POTASSIUM SULFATE\SODIUM SULFATE
  25. ACETAMINOPHEN. [Concomitant]
     Active Substance: ACETAMINOPHEN
  26. METHOTREXATE. [Concomitant]
     Active Substance: METHOTREXATE
  27. RESTORIL [Concomitant]
     Active Substance: TEMAZEPAM
  28. TRAZODONE [Concomitant]
     Active Substance: TRAZODONE HYDROCHLORIDE
  29. ACETAMINOPHEN W/OXYCODONE [Concomitant]
     Active Substance: ACETAMINOPHEN\OXYCODONE HYDROCHLORIDE
  30. CEPHALEXIN [CEFALEXIN] [Concomitant]
     Active Substance: CEPHALEXIN
  31. OLOPATADINE. [Concomitant]
     Active Substance: OLOPATADINE
  32. SILDENAFIL. [Concomitant]
     Active Substance: SILDENAFIL
  33. ATIVAN [Concomitant]
     Active Substance: LORAZEPAM
  34. MICROZIDE [Concomitant]
     Active Substance: HYDROCHLOROTHIAZIDE
  35. LIDOCAINE. [Concomitant]
     Active Substance: LIDOCAINE
  36. CIPROFLOXACIN. [Concomitant]
     Active Substance: CIPROFLOXACIN

REACTIONS (16)
  - Osteopenia [Not Recovered/Not Resolved]
  - Emotional distress [Not Recovered/Not Resolved]
  - Pain in extremity [Unknown]
  - Osteonecrosis [Unknown]
  - Rib fracture [Not Recovered/Not Resolved]
  - Osteoarthritis [Not Recovered/Not Resolved]
  - Bone loss [Unknown]
  - Mobility decreased [Unknown]
  - Arthropathy [Unknown]
  - Pain [Not Recovered/Not Resolved]
  - Chondroplasty [Unknown]
  - Tendon rupture [Unknown]
  - Bone density decreased [Not Recovered/Not Resolved]
  - Foot fracture [Not Recovered/Not Resolved]
  - Arthroscopy [Not Recovered/Not Resolved]
  - Back pain [Unknown]

NARRATIVE: CASE EVENT DATE: 20151229
